FAERS Safety Report 4413065-8 (Version None)
Quarter: 2004Q3

REPORT INFORMATION
  Report Type: 
  Country: None (occurrence: None)
  Receive Date: 20040802
  Receipt Date: 20040802
  Transmission Date: 20050211
  Serious: Yes (Other)
  Sender: FDA-Public Use
  Company Number: None

PATIENT
  Sex: Female
  Weight: 47.6277 kg

DRUGS (2)
  1. ZOLOFT [Suspect]
     Indication: ANXIETY
     Dosage: 100 MG ONCE A DAY ORAL
     Route: 048
     Dates: start: 19991102, end: 20040604
  2. ZOLOFT [Suspect]
     Indication: SLEEP DISORDER THERAPY
     Dosage: 100 MG ONCE A DAY ORAL
     Route: 048
     Dates: start: 19991102, end: 20040604

REACTIONS (4)
  - AGGRESSION [None]
  - SELF INJURIOUS BEHAVIOUR [None]
  - SKIN LACERATION [None]
  - SUICIDAL IDEATION [None]
